FAERS Safety Report 7151269-4 (Version None)
Quarter: 2010Q4

REPORT INFORMATION
  Report Type: 
  Country: None (occurrence: None)
  Receive Date: 20101210
  Receipt Date: 20101201
  Transmission Date: 20110411
  Serious: Yes (Disabling)
  Sender: FDA-Public Use
  Company Number: GB-JNJFOC-20100908347

PATIENT
  Age: 60 Year
  Sex: Female
  Weight: 61.35 kg

DRUGS (4)
  1. DOXORUBICIN HYDROCHLORIDE [Suspect]
     Indication: T-CELL LYMPHOMA
     Route: 042
  2. CYCLOPHOSPHAMIDE [Suspect]
     Indication: T-CELL LYMPHOMA
     Route: 042
  3. VINCRISTINE [Suspect]
     Indication: T-CELL LYMPHOMA
     Route: 042
  4. PREDNISOLONE [Suspect]
     Indication: T-CELL LYMPHOMA
     Route: 048

REACTIONS (1)
  - REVERSIBLE POSTERIOR LEUKOENCEPHALOPATHY SYNDROME [None]
